FAERS Safety Report 11031701 (Version 1)
Quarter: 2015Q2

REPORT INFORMATION
  Report Type: Spontaneous
  Country: US (occurrence: US)
  Receive Date: 20150415
  Receipt Date: 20150415
  Transmission Date: 20150821
  Serious: No
  Sender: FDA-Public Use
  Company Number: US-BAYER-2015-084845

PATIENT
  Sex: Female
  Weight: 2.9 kg

DRUGS (1)
  1. NATAZIA [Suspect]
     Active Substance: DIENOGEST\ESTRADIOL VALERATE
     Dosage: UNK
     Route: 064
     Dates: start: 201405, end: 201406

REACTIONS (2)
  - Exposure during pregnancy [None]
  - Haemangioma congenital [None]

NARRATIVE: CASE EVENT DATE: 201405
